FAERS Safety Report 18867107 (Version 1)
Quarter: 2021Q1

REPORT INFORMATION
  Report Type: Spontaneous
  Country: TW (occurrence: TW)
  Receive Date: 20210209
  Receipt Date: 20210209
  Transmission Date: 20210420
  Serious: Yes (Other)
  Sender: FDA-Public Use
  Company Number: TW-LEADINGPHARMA-TW-2021LEALIT00037

PATIENT
  Age: 40 Year
  Sex: Male

DRUGS (8)
  1. HALOPERIDOL. [Interacting]
     Active Substance: HALOPERIDOL
     Indication: OCULOGYRIC CRISIS
     Route: 065
  2. LORAZEPAM TABLETS USP [Suspect]
     Active Substance: LORAZEPAM
     Route: 065
  3. CLOZAPINE. [Suspect]
     Active Substance: CLOZAPINE
     Indication: SCHIZOPHRENIA
     Route: 065
  4. CLOZAPINE. [Suspect]
     Active Substance: CLOZAPINE
     Route: 065
  5. BIPERIDEN [Interacting]
     Active Substance: BIPERIDEN
     Indication: OCULOGYRIC CRISIS
     Route: 030
  6. TRIHEXYPHENIDYL [Interacting]
     Active Substance: TRIHEXYPHENIDYL
     Indication: OCULOGYRIC CRISIS
     Route: 065
  7. LORAZEPAM TABLETS USP [Suspect]
     Active Substance: LORAZEPAM
     Indication: SCHIZOPHRENIA
     Route: 065
  8. CLOTIAPINE [Interacting]
     Active Substance: CLOTHIAPINE
     Indication: OCULOGYRIC CRISIS
     Route: 065

REACTIONS (4)
  - Agitation [Recovered/Resolved]
  - Hallucination [Recovered/Resolved]
  - Aggression [Recovered/Resolved]
  - Oculogyric crisis [Recovered/Resolved]
